FAERS Safety Report 9159554 (Version 2)
Quarter: 2013Q2

REPORT INFORMATION
  Report Type: Spontaneous
  Country: US (occurrence: None)
  Receive Date: 20130212
  Receipt Date: 20130403
  Transmission Date: 20140414
  Serious: Yes (Other)
  Sender: FDA-Public Use
  Company Number: DSU-2013-01100

PATIENT
  Age: 78 Year
  Sex: Male
  Weight: 88.91 kg

DRUGS (8)
  1. BENICAR [Suspect]
     Indication: HYPERTENSION
     Dosage: 40 MG (40 MG, QD), PER ORAL
     Route: 048
  2. COZAAR [Suspect]
     Indication: HYPERTENSION
     Dosage: 100 MG (100 MG, QD), PER ORAL
     Route: 048
     Dates: start: 2011, end: 20110206
  3. AMLODIPINE (AMLODIPINE) (AMLODIPINE) [Concomitant]
  4. GLYBURIDE (GLIBENCLAMIDE) (GLIBENCLAMIDE) [Concomitant]
  5. CARVEDILOL (CARVEDILOL) (CARVEDILOL) [Concomitant]
  6. MULTIVITAMIN (VITAMINS NOS) (VITAMINS NOS) [Concomitant]
  7. OSTEO BI-FLEX (GLUCOSAMINE HYDROCHLORIDE, CHONDROITIN SULFATE) (GLUCOSAMINE HYDROCHLORIDE, CHONDROITIN SULFATE) [Concomitant]
  8. FISH OIL (FISH OIL) (FISH OIL) [Concomitant]

REACTIONS (8)
  - Pulse absent [None]
  - Hypotension [None]
  - Skin discolouration [None]
  - Cold sweat [None]
  - Chronic sinusitis [None]
  - Apparent death [None]
  - Malaise [None]
  - Nausea [None]
